FAERS Safety Report 7946162-0 (Version None)
Quarter: 2011Q4

REPORT INFORMATION
  Report Type: 
  Country: None (occurrence: None)
  Receive Date: 20111129
  Receipt Date: 20111117
  Transmission Date: 20120403
  Serious: Yes (Hospitalization)
  Sender: FDA-Public Use
  Company Number: JP-GLAXOSMITHKLINE-B0764268A

PATIENT
  Sex: Male

DRUGS (4)
  1. DOGMATYL [Concomitant]
  2. REQUIP [Suspect]
     Indication: RESTLESS LEGS SYNDROME
     Dosage: 1MG PER DAY
     Route: 048
     Dates: start: 20110618, end: 20111117
  3. CHINESE MEDICINE [Concomitant]
     Route: 048
  4. NIZATIDINE [Concomitant]
     Route: 048

REACTIONS (1)
  - CONVULSION [None]
